FAERS Safety Report 5581055-8 (Version None)
Quarter: 2007Q4

REPORT INFORMATION
  Report Type: 
  Country: None (occurrence: None)
  Receive Date: 20071227
  Receipt Date: 20071211
  Transmission Date: 20080405
  Serious: Yes (Hospitalization)
  Sender: FDA-Public Use
  Company Number: E2090-00359-SPO-JP

PATIENT
  Age: 12 Year
  Sex: Male

DRUGS (3)
  1. ZONISAMIDE [Suspect]
     Indication: EPILEPSY
     Dosage: ORAL
     Route: 048
     Dates: start: 20070801, end: 20071001
  2. CLARITHROMYCIN [Concomitant]
  3. AGENT FOR COMMON COLD [Concomitant]

REACTIONS (4)
  - ALANINE AMINOTRANSFERASE INCREASED [None]
  - ASPARTATE AMINOTRANSFERASE INCREASED [None]
  - DRUG ERUPTION [None]
  - NASOPHARYNGITIS [None]
